FAERS Safety Report 7348770-7 (Version None)
Quarter: 2011Q1

REPORT INFORMATION
  Report Type: 
  Country: None (occurrence: None)
  Receive Date: 20110225
  Receipt Date: 20101109
  Transmission Date: 20110831
  Serious: No
  Sender: FDA-Public Use
  Company Number: 318092

PATIENT
  Age: 61 Year
  Sex: Female

DRUGS (6)
  1. SYNTHROID [Concomitant]
  2. VICTOZA [Suspect]
  3. VICTOZA [Suspect]
     Indication: TYPE 2 DIABETES MELLITUS
     Dosage: 0.6 MG, SUBCUTANEOUS, 0.6 MG, SUBCUTANEOUS
     Route: 058
  4. LOVAZA [Concomitant]
  5. LIPITOR [Concomitant]
  6. ATENOLOL CHLORATHALIDONE (ATENOLOL, CHLORTALIDONE) [Concomitant]

REACTIONS (4)
  - INJECTION SITE ERYTHEMA [None]
  - INJECTION SITE PAIN [None]
  - INJECTION SITE URTICARIA [None]
  - INJECTION SITE HAEMATOMA [None]
